FAERS Safety Report 13809384 (Version 4)
Quarter: 2018Q4

REPORT INFORMATION
  Report Type: Spontaneous
  Country: US (occurrence: US)
  Receive Date: 20170728
  Receipt Date: 20181003
  Transmission Date: 20190204
  Serious: Yes (Hospitalization, Other)
  Sender: FDA-Public Use
  Company Number: US-SA-2017SA138769

PATIENT
  Sex: Female
  Weight: 124 kg

DRUGS (4)
  1. FABRAZYME [Suspect]
     Active Substance: AGALSIDASE BETA
     Dosage: 135 MG,UNK
     Route: 041
     Dates: start: 20170417
  2. FABRAZYME [Suspect]
     Active Substance: AGALSIDASE BETA
     Indication: FABRY^S DISEASE
     Dosage: UNK UNK,UNK
     Route: 041
  3. CALCIUM [Concomitant]
     Active Substance: CALCIUM
     Dosage: UNK UNK,UNK
     Route: 042
  4. RAYALDEE [Concomitant]
     Active Substance: CALCIFEDIOL
     Dosage: 30 UG,QD
     Route: 048
     Dates: start: 20180423

REACTIONS (14)
  - Fall [Unknown]
  - Walking aid user [Unknown]
  - Asthenia [Recovering/Resolving]
  - Cardiac disorder [Unknown]
  - Grip strength decreased [Unknown]
  - Sinus bradycardia [Not Recovered/Not Resolved]
  - Dizziness [Recovering/Resolving]
  - Cardiac valve fibroelastoma [Recovered/Resolved]
  - Ischaemic stroke [Unknown]
  - Hyperlipidaemia [Unknown]
  - Transient ischaemic attack [Unknown]
  - Blood pressure increased [Unknown]
  - Systolic dysfunction [Unknown]
  - Pain [Unknown]

NARRATIVE: CASE EVENT DATE: 20170427
